FAERS Safety Report 14607294 (Version 7)
Quarter: 2020Q3

REPORT INFORMATION
  Report Type: Spontaneous
  Country: US (occurrence: US)
  Receive Date: 20180307
  Receipt Date: 20200708
  Transmission Date: 20201102
  Serious: No
  Sender: FDA-Public Use
  Company Number: US-PFIZER INC-2018092953

PATIENT
  Age: 64 Year
  Sex: Female
  Weight: 98 kg

DRUGS (6)
  1. AMLODIPINE [Concomitant]
     Active Substance: AMLODIPINE BESYLATE
     Indication: BLOOD PRESSURE ABNORMAL
     Dosage: 10 MG, UNK (STARTED TAKING IT LAST YEAR)
  2. LISINOPRIL. [Concomitant]
     Active Substance: LISINOPRIL
     Indication: BLOOD PRESSURE ABNORMAL
     Dosage: UNK (20?25 MG)
  3. XELJANZ XR [Suspect]
     Active Substance: TOFACITINIB CITRATE
     Indication: RHEUMATOID ARTHRITIS
     Dosage: 11 MG, 1X/DAY
     Route: 048
     Dates: start: 20180101
  4. NAPROXEN SODIUM. [Concomitant]
     Active Substance: NAPROXEN SODIUM
     Indication: PAIN
     Dosage: 500 MG, AS NEEDED (CAN TAKE UP TO 3 TIMES A DAY. BUT SHE DID NOT TAKE UNLESS SHE REALLY NEED IT)
  5. LEVOTHYROXINE. [Concomitant]
     Active Substance: LEVOTHYROXINE
     Indication: BASEDOW^S DISEASE
     Dosage: 137 UG, 1X/DAY (HAD BEEN TAKING THAT FOR YEARS. IT MUST HAD BEEN 25 YEARS. IT MIGHT BE MORE)
  6. LEVOTHYROXINE. [Concomitant]
     Active Substance: LEVOTHYROXINE
     Indication: HYPERTHYROIDISM

REACTIONS (6)
  - Arthralgia [Unknown]
  - Weight increased [Unknown]
  - Pain [Not Recovered/Not Resolved]
  - Tooth disorder [Unknown]
  - Pain in extremity [Unknown]
  - Body height decreased [Unknown]

NARRATIVE: CASE EVENT DATE: 2018
